FAERS Safety Report 9356408 (Version 4)
Quarter: 2014Q1

REPORT INFORMATION
  Report Type: Spontaneous
  Country: US (occurrence: US)
  Receive Date: 20130619
  Receipt Date: 20140211
  Transmission Date: 20141002
  Serious: Yes (Hospitalization)
  Sender: FDA-Public Use
  Company Number: US-B.I. PHARMACEUTICALS,INC./RIDGEFIELD-2013-BI-16836BP

PATIENT
  Age: 67 Year
  Sex: Female
  Weight: 68.04 kg

DRUGS (12)
  1. SPIRONOLACTONE [Concomitant]
     Dosage: 25 MG
     Route: 048
  2. PRAVASTATIN [Concomitant]
     Dosage: 20 MG
     Route: 048
  3. FERROUS SULFATE [Concomitant]
     Dosage: 975 MG
     Route: 048
  4. PROTONIX [Concomitant]
     Dosage: 80 MG
     Route: 048
  5. SENNA [Concomitant]
     Route: 048
  6. VITAMIN C [Concomitant]
     Dosage: 1000 MG
     Route: 048
  7. PRADAXA [Suspect]
     Indication: ATRIAL FIBRILLATION
     Dosage: 300 MG
     Route: 048
     Dates: start: 20120523, end: 20120611
  8. ASPIRIN [Concomitant]
     Dosage: 81 MG
     Route: 048
     Dates: end: 20120611
  9. VITAMIN D [Concomitant]
     Dosage: 1000 U
     Route: 048
  10. METFORMIN [Concomitant]
     Dosage: 1000 MG
     Route: 048
  11. AMLODIPINE BESYLATE [Concomitant]
     Dosage: 10 MG
     Route: 048
  12. METOPROLOL ER [Concomitant]
     Dosage: 25 MG
     Route: 048

REACTIONS (3)
  - Gastrointestinal haemorrhage [Unknown]
  - Anaemia [Unknown]
  - Epistaxis [Unknown]
